FAERS Safety Report 6413405 (Version 15)
Quarter: 2013Q3

REPORT INFORMATION
  Report Type: Spontaneous
  Country: US (occurrence: US)
  Receive Date: 20070914
  Receipt Date: 20130821
  Transmission Date: 20140515
  Serious: Yes (Other)
  Sender: FDA-Public Use
  Company Number: PHEH2007US12144

PATIENT
  Age: 80 Year
  Sex: Female

DRUGS (44)
  1. ZOMETA [Suspect]
  2. ZOMETA [Suspect]
  3. SYNTHROID [Concomitant]
  4. ALEVE [Concomitant]
  5. TYLENOL [Concomitant]
  6. BENADRYL [Concomitant]
  7. BACTRIM [Concomitant]
  8. FASLODEX [Concomitant]
  9. CYCLOPHOSPHAMIDE [Concomitant]
  10. TAMOXIFEN [Concomitant]
  11. HERCEPTIN [Concomitant]
     Dates: start: 20040816
  12. CLINDAMYCIN [Concomitant]
  13. FLAGYL [Concomitant]
  14. COUMADIN [Concomitant]
  15. FEMARA [Concomitant]
  16. MIRALAX [Concomitant]
  17. KCL [Concomitant]
  18. PREDNISONE [Concomitant]
  19. LEVOTHYROXINE SODIUM [Concomitant]
  20. ATROVENT [Concomitant]
  21. NEULASTA [Concomitant]
  22. ARANESP [Concomitant]
  23. ALDACTONE [Concomitant]
  24. DECADRON                                /CAN/ [Concomitant]
  25. ALOXI [Concomitant]
  26. TAGAMET [Concomitant]
  27. ESTROGENS [Concomitant]
  28. VIOXX [Concomitant]
  29. TRAMADOL [Concomitant]
  30. DIFLUCAN [Concomitant]
  31. FERROUS SULFATE [Concomitant]
  32. ALBUTEROL [Concomitant]
  33. FLUTICASONE [Concomitant]
  34. NALOXONE [Concomitant]
  35. ZOLPIDEM [Concomitant]
  36. PROCHLORPERAZINE [Concomitant]
  37. FLOVENT [Concomitant]
  38. LASIX [Concomitant]
  39. COMPAZINE [Concomitant]
  40. MAGACE [Concomitant]
  41. ALAVERT [Concomitant]
  42. RHINOCORT (BECLOMETASONE DIPROPIONATE) [Concomitant]
  43. HEPARIN [Concomitant]
  44. CIPRO [Concomitant]

REACTIONS (103)
  - Faecal incontinence [Unknown]
  - Constipation [Unknown]
  - Diarrhoea [Unknown]
  - Hypophagia [Unknown]
  - Pain in extremity [Unknown]
  - Skin ulcer [Unknown]
  - Respiratory tract congestion [Unknown]
  - Blood triglycerides increased [Unknown]
  - Dysphagia [Unknown]
  - Device related infection [Unknown]
  - Chills [Unknown]
  - Fatigue [Unknown]
  - Bowel movement irregularity [Unknown]
  - Ejection fraction decreased [Unknown]
  - Tongue neoplasm [Unknown]
  - Cataract [Unknown]
  - Vision blurred [Unknown]
  - Tenosynovitis [Unknown]
  - Pain [Not Recovered/Not Resolved]
  - Lower limb fracture [Unknown]
  - Cerebral atrophy [Unknown]
  - Convulsion [Unknown]
  - Gait disturbance [Unknown]
  - Ataxia [Unknown]
  - Lymphoma [Unknown]
  - Metastases to lymph nodes [Unknown]
  - Mouth cyst [Unknown]
  - Joint swelling [Recovering/Resolving]
  - Gastric disorder [Unknown]
  - Granuloma [Unknown]
  - Hepatic steatosis [Unknown]
  - Somnolence [Unknown]
  - Cardiac failure congestive [Unknown]
  - Atrial fibrillation [Unknown]
  - Large intestine polyp [Unknown]
  - Diverticulitis [Unknown]
  - Irritable bowel syndrome [Unknown]
  - Abscess limb [Unknown]
  - Wound secretion [Unknown]
  - Tooth abscess [Unknown]
  - Intervertebral disc space narrowing [Unknown]
  - Spinal osteoarthritis [Unknown]
  - Osteonecrosis of jaw [Unknown]
  - Pain in jaw [Unknown]
  - Infection [Unknown]
  - Abscess jaw [Unknown]
  - Deformity [Unknown]
  - Malignant neoplasm progression [Unknown]
  - Epidermal growth factor receptor increased [Unknown]
  - Breast neoplasm [Unknown]
  - Bone lesion [Recovering/Resolving]
  - Bone pain [Unknown]
  - Neck pain [Unknown]
  - Metastases to central nervous system [Unknown]
  - Central nervous system lesion [Unknown]
  - Metastases to bone [Unknown]
  - Bone erosion [Unknown]
  - Osteosclerosis [Unknown]
  - Scoliosis [Unknown]
  - Intervertebral disc degeneration [Unknown]
  - Primary sequestrum [Unknown]
  - Osteomyelitis [Unknown]
  - Oral pain [Unknown]
  - Dyspnoea exertional [Unknown]
  - Local swelling [Not Recovered/Not Resolved]
  - Condition aggravated [Not Recovered/Not Resolved]
  - Urinary incontinence [Unknown]
  - Urinary tract infection [Unknown]
  - Chronic obstructive pulmonary disease [Unknown]
  - Weight decreased [Unknown]
  - Coagulopathy [Unknown]
  - Prothrombin time prolonged [Unknown]
  - Pneumonia [Unknown]
  - Pleural effusion [Unknown]
  - Productive cough [Recovering/Resolving]
  - Pleural fibrosis [Unknown]
  - Peptic ulcer [Unknown]
  - Upper gastrointestinal haemorrhage [Unknown]
  - Anaemia [Unknown]
  - Hypokalaemia [Unknown]
  - Goitre [Unknown]
  - Femoral neck fracture [Unknown]
  - Cognitive disorder [Unknown]
  - Cellulitis [Unknown]
  - Skin fragility [Unknown]
  - Confusional state [Unknown]
  - Lymphadenopathy [Unknown]
  - Abscess [Unknown]
  - Synovial cyst [Unknown]
  - Adenocarcinoma [Unknown]
  - Tooth disorder [Unknown]
  - Inguinal mass [Recovered/Resolved]
  - Iron deficiency [Unknown]
  - Microcytosis [Unknown]
  - Alopecia [Unknown]
  - Sinusitis [Unknown]
  - Asthenia [Unknown]
  - Vomiting [Unknown]
  - Pyrexia [Unknown]
  - Blood alkaline phosphatase decreased [Unknown]
  - Oedema [Unknown]
  - Balance disorder [Unknown]
  - Activities of daily living impaired [Unknown]
